FAERS Safety Report 17858636 (Version 2)
Quarter: 2020Q2

REPORT INFORMATION
  Report Type: Report from Study
  Country: None (occurrence: US)
  Receive Date: 20200604
  Receipt Date: 20200605
  Transmission Date: 20200714
  Serious: No
  Sender: FDA-Public Use
  Company Number: US-US WORLDMEDS, LLC-USW202001-000155

PATIENT
  Age: 80 Year
  Sex: Male

DRUGS (8)
  1. APOKYN [Suspect]
     Active Substance: APOMORPHINE HYDROCHLORIDE
     Indication: PARKINSON^S DISEASE
     Route: 058
     Dates: start: 20200124
  2. APOKYN [Suspect]
     Active Substance: APOMORPHINE HYDROCHLORIDE
     Route: 058
     Dates: start: 20191206
  3. APOKYN [Suspect]
     Active Substance: APOMORPHINE HYDROCHLORIDE
     Route: 058
     Dates: start: 20200204
  4. APOKYN [Suspect]
     Active Substance: APOMORPHINE HYDROCHLORIDE
     Route: 058
     Dates: start: 20200203
  5. CARBO/LEVODOPA [Concomitant]
     Indication: PARKINSON^S DISEASE
  6. APOKYN [Suspect]
     Active Substance: APOMORPHINE HYDROCHLORIDE
  7. APOKYN [Suspect]
     Active Substance: APOMORPHINE HYDROCHLORIDE
     Route: 058
     Dates: start: 20200124
  8. RYTARY [Concomitant]
     Active Substance: CARBIDOPA\LEVODOPA
     Indication: PARKINSON^S DISEASE
     Dosage: UNKNOWN

REACTIONS (6)
  - Injection site pain [Recovering/Resolving]
  - Injection site pruritus [Recovering/Resolving]
  - Injection site haemorrhage [Recovering/Resolving]
  - Therapeutic product effect decreased [Unknown]
  - Injection site erythema [Recovering/Resolving]
  - Nausea [Recovered/Resolved]

NARRATIVE: CASE EVENT DATE: 20200124
